FAERS Safety Report 6523483-X (Version None)
Quarter: 2009Q4

REPORT INFORMATION
  Report Type: 
  Country: None (occurrence: None)
  Receive Date: 20091231
  Receipt Date: 20091217
  Transmission Date: 20100525
  Serious: Yes (Hospitalization, Other)
  Sender: FDA-Public Use
  Company Number: PHEH2008US03566

PATIENT
  Sex: Female

DRUGS (11)
  1. ZELNORM [Suspect]
     Indication: CONSTIPATION
     Dosage: 6 MG, BID
  2. MIRALAX [Concomitant]
     Dosage: UNK
  3. ACETYLSALICYLIC ACID [Concomitant]
     Dosage: 81 MG, UNK
  4. MOBIC [Concomitant]
  5. PROZAC [Concomitant]
  6. FLEXERIL [Concomitant]
  7. PANTOPRAZOLE [Concomitant]
  8. HYDROCODONE [Concomitant]
     Indication: BACK PAIN
  9. MULTI-VITAMINS [Concomitant]
  10. VITAMIN B COMPLEX CAP [Concomitant]
  11. OMNICEF [Concomitant]

REACTIONS (59)
  - ACCIDENT [None]
  - ADHESIOLYSIS [None]
  - ANGIOPATHY [None]
  - ANXIETY [None]
  - ARTHRALGIA [None]
  - AXONAL NEUROPATHY [None]
  - BACK PAIN [None]
  - BILIARY DYSKINESIA [None]
  - BLOOD ALKALINE PHOSPHATASE INCREASED [None]
  - BLOOD PRESSURE INCREASED [None]
  - CARDIOVASCULAR DISORDER [None]
  - CAROTID ARTERY STENOSIS [None]
  - CAROTID PULSE [None]
  - CEREBRAL AUTOSOMAL DOMINANT ARTERIOPATHY WITH SUBCORTICAL INFARCTS AND LEUKOENCEPHALOPATHY [None]
  - CEREBROVASCULAR ACCIDENT [None]
  - CHOLECYSTECTOMY [None]
  - CHOLECYSTITIS [None]
  - DEMYELINATING POLYNEUROPATHY [None]
  - DEPRESSION [None]
  - DIARRHOEA [None]
  - FALL [None]
  - FLATULENCE [None]
  - GASTROENTERITIS [None]
  - GASTROINTESTINAL TUBE INSERTION [None]
  - GASTROSTOMY [None]
  - HAEMORRHAGE [None]
  - HEADACHE [None]
  - HYPERTENSION [None]
  - HYPOGAMMAGLOBULINAEMIA [None]
  - HYPOGLYCAEMIA [None]
  - HYPOTHYROIDISM [None]
  - INJURY [None]
  - INTESTINAL RESECTION [None]
  - IRRITABLE BOWEL SYNDROME [None]
  - LACERATION [None]
  - LAPAROTOMY [None]
  - MEMORY IMPAIRMENT [None]
  - MIGRAINE [None]
  - MUSCULOSKELETAL PAIN [None]
  - NECK PAIN [None]
  - NEUROPATHY PERIPHERAL [None]
  - OVARIAN CYST [None]
  - PAIN [None]
  - PAIN IN EXTREMITY [None]
  - PERIPHERAL SENSORIMOTOR NEUROPATHY [None]
  - PYREXIA [None]
  - RECTAL PROLAPSE [None]
  - RECTAL PROLAPSE REPAIR [None]
  - SALPINGO-OOPHORECTOMY UNILATERAL [None]
  - SENSORY LOSS [None]
  - SMALL INTESTINAL OBSTRUCTION [None]
  - SPINAL CORD HERNIATION [None]
  - SPINAL OSTEOARTHRITIS [None]
  - TACHYCARDIA [None]
  - THROAT LESION [None]
  - THYROID DISORDER [None]
  - TRANSIENT ISCHAEMIC ATTACK [None]
  - VISUAL IMPAIRMENT [None]
  - WOUND INFECTION [None]
